FAERS Safety Report 4361434-7 (Version None)
Quarter: 2004Q2

REPORT INFORMATION
  Report Type: 
  Country: None (occurrence: None)
  Receive Date: 20040517
  Receipt Date: 20040505
  Transmission Date: 20050107
  Serious: Yes (Death)
  Sender: FDA-Public Use
  Company Number: 04H-163-0260159-00

PATIENT
  Age: 60 Year

DRUGS (3)
  1. MORPHINE SUL INJ [Suspect]
     Dosage: 18 MG, RECORDED BY RN IN PCA LOG; SEE IMAGE
     Dates: start: 20040416, end: 20040416
  2. MORPHINE SUL INJ [Suspect]
     Dosage: 18 MG, RECORDED BY RN IN PCA LOG; SEE IMAGE
     Dates: start: 20040417, end: 20040417
  3. MORPHINE SUL INJ [Suspect]
     Dosage: 18 MG, RECORDED BY RN IN PCA LOG; SEE IMAGE
     Dates: start: 20040416

REACTIONS (4)
  - COMA [None]
  - FALL [None]
  - MEDICATION ERROR [None]
  - OVERDOSE [None]
